FAERS Safety Report 13707996 (Version 4)
Quarter: 2017Q3

REPORT INFORMATION
  Report Type: Spontaneous
  Country: GB (occurrence: GB)
  Receive Date: 20170630
  Receipt Date: 20170817
  Transmission Date: 20171127
  Serious: Yes (Other)
  Sender: FDA-Public Use
  Company Number: GB-BAXTER-2017BAX026025

PATIENT
  Age: 8 Month
  Sex: Male

DRUGS (6)
  1. VINCRISTINE SULFATE. [Suspect]
     Active Substance: VINCRISTINE SULFATE
     Indication: ANAPLASTIC LARGE-CELL LYMPHOMA
  2. PREDNISOLONE ACTAVIS [Suspect]
     Active Substance: PREDNISOLONE
     Indication: ALK GENE REARRANGEMENT POSITIVE
     Dosage: INDUCTION CHEMOTHERAPY
     Route: 065
  3. CYCLOPHOSPHAMIDE INJECTION 1G [Suspect]
     Active Substance: CYCLOPHOSPHAMIDE
     Indication: ALK GENE REARRANGEMENT POSITIVE
     Dosage: INDUCTION CHEMOTHERAPY
     Route: 065
  4. VINCRISTINE SULFATE. [Suspect]
     Active Substance: VINCRISTINE SULFATE
     Indication: ALK GENE REARRANGEMENT POSITIVE
     Dosage: INDUCTION CHEMOTHERAPY
     Route: 065
  5. PREDNISOLONE ACTAVIS [Suspect]
     Active Substance: PREDNISOLONE
     Indication: ANAPLASTIC LARGE-CELL LYMPHOMA
  6. CYCLOPHOSPHAMIDE INJECTION 1G [Suspect]
     Active Substance: CYCLOPHOSPHAMIDE
     Indication: ANAPLASTIC LARGE-CELL LYMPHOMA

REACTIONS (4)
  - Histiocytosis haematophagic [Unknown]
  - Malaise [Unknown]
  - Hepatosplenomegaly [Unknown]
  - Condition aggravated [Unknown]
